FAERS Safety Report 14571220 (Version 1)
Quarter: 2018Q1

REPORT INFORMATION
  Report Type: Other
  Country: DE (occurrence: DE)
  Receive Date: 20180226
  Receipt Date: 20180226
  Transmission Date: 20180509
  Serious: No
  Sender: FDA-Public Use
  Company Number: DE-LUPIN PHARMACEUTICALS INC.-2017-06846

PATIENT
  Sex: Male
  Weight: 76 kg

DRUGS (6)
  1. ROSUVASTATIN. [Suspect]
     Active Substance: ROSUVASTATIN
     Indication: HYPERCHOLESTEROLAEMIA
     Dosage: UNK (5 TO 10 MG)
     Route: 048
     Dates: start: 2016
  2. SIMVASTATIN. [Suspect]
     Active Substance: SIMVASTATIN
     Indication: HYPERCHOLESTEROLAEMIA
     Dosage: UNK (20 TO 40 MG)
     Route: 048
     Dates: start: 201411
  3. ROSUVASTATIN. [Suspect]
     Active Substance: ROSUVASTATIN
     Dosage: UNK (5 TO 10 MG)
     Route: 048
     Dates: end: 2017
  4. SIMVASTATIN. [Suspect]
     Active Substance: SIMVASTATIN
     Dosage: UNK (20 TO 40 MG)
     Route: 048
     Dates: end: 2016
  5. ATORVASTATIN [Suspect]
     Active Substance: ATORVASTATIN
     Dosage: UNK (10 TO 40 MG)
     Route: 048
     Dates: end: 2016
  6. ATORVASTATIN [Suspect]
     Active Substance: ATORVASTATIN
     Indication: HYPERCHOLESTEROLAEMIA
     Dosage: UNK (10 TO 40 MG)
     Route: 048
     Dates: start: 2015

REACTIONS (3)
  - Myopathy [Recovered/Resolved]
  - Blood creatine phosphokinase increased [Recovered/Resolved]
  - Dermatitis allergic [Recovered/Resolved]
